FAERS Safety Report 6182166-9 (Version None)
Quarter: 2009Q2

REPORT INFORMATION
  Report Type: 
  Country: None (occurrence: None)
  Receive Date: 20090505
  Receipt Date: 20090505
  Transmission Date: 20091009
  Serious: Yes (Life-Threatening, Hospitalization)
  Sender: FDA-Public Use
  Company Number: None

PATIENT
  Age: 35 Year
  Sex: Female
  Weight: 85.2762 kg

DRUGS (2)
  1. AVELOX [Suspect]
     Indication: BRONCHITIS
     Dosage: 1 PILL 1 TIME DAY PO
     Route: 048
     Dates: start: 20090427, end: 20090507
  2. AUGUMENTIM [Concomitant]

REACTIONS (9)
  - ARTHRALGIA [None]
  - BURNING SENSATION [None]
  - CARPAL TUNNEL SYNDROME [None]
  - CHEST PAIN [None]
  - CRYING [None]
  - DYSPNOEA [None]
  - OCULAR ICTERUS [None]
  - PAIN [None]
  - PARAESTHESIA [None]
